FAERS Safety Report 4522679-6 (Version None)
Quarter: 2004Q4

REPORT INFORMATION
  Report Type: 
  Country: None (occurrence: None)
  Receive Date: 20041207
  Receipt Date: 20041119
  Transmission Date: 20050328
  Serious: Yes (Hospitalization)
  Sender: FDA-Public Use
  Company Number: GBS041115983

PATIENT
  Age: 15 Year
  Sex: Male

DRUGS (3)
  1. GEMZAR [Suspect]
     Indication: RENAL CELL CARCINOMA STAGE UNSPECIFIED
  2. CAPECITABINE [Concomitant]
  3. ANTIEMETICS [Concomitant]

REACTIONS (2)
  - CARDIOMYOPATHY [None]
  - HYPERTENSION [None]
